FAERS Safety Report 5997992-6 (Version None)
Quarter: 2008Q4

REPORT INFORMATION
  Report Type: 
  Country: None (occurrence: None)
  Receive Date: 20081211
  Receipt Date: 20081204
  Transmission Date: 20090506
  Serious: Yes (Hospitalization)
  Sender: FDA-Public Use
  Company Number: 107272

PATIENT
  Age: 67 Year
  Sex: Female
  Weight: 90.2658 kg

DRUGS (7)
  1. LOPERAMIDE [Suspect]
     Indication: DIARRHOEA
     Dosage: 10CC/4TIMES PER DAY/ORAL
     Route: 048
     Dates: start: 20060101, end: 20081204
  2. LOPERAMIDE HCL [Concomitant]
  3. NITROGLYCERIN [Concomitant]
  4. AMIODARONE HCL [Concomitant]
  5. METOPROLOL TARTRATE [Concomitant]
  6. BENAZEPRIL HYDROCHLORIDE [Concomitant]
  7. COUMADIN [Concomitant]

REACTIONS (2)
  - BLOOD GLUCOSE INCREASED [None]
  - CARDIAC FAILURE CONGESTIVE [None]
